FAERS Safety Report 6240066-X (Version None)
Quarter: 2009Q2

REPORT INFORMATION
  Report Type: 
  Country: None (occurrence: None)
  Receive Date: 20090618
  Receipt Date: 20090618
  Transmission Date: 20091009
  Serious: No
  Sender: FDA-Public Use
  Company Number: None

PATIENT
  Sex: Female
  Weight: 77.1115 kg

DRUGS (1)
  1. ZICAM GEL SWAB ZICAM [Suspect]
     Indication: NASOPHARYNGITIS
     Dosage: GEL SWAB IN NOSTRIL 5 X A DAY

REACTIONS (1)
  - ANOSMIA [None]
